FAERS Safety Report 25119214 (Version 1)
Quarter: 2025Q1

REPORT INFORMATION
  Report Type: Spontaneous
  Country: US (occurrence: None)
  Receive Date: 20250325
  Receipt Date: 20250325
  Transmission Date: 20250409
  Serious: No
  Sender: FDA-CTU
  Company Number: None

PATIENT
  Age: 77 Year
  Sex: Male
  Weight: 81.9 kg

DRUGS (1)
  1. FASENRA [Suspect]
     Active Substance: BENRALIZUMAB
     Indication: Asthma

REACTIONS (1)
  - Influenza like illness [None]

NARRATIVE: CASE EVENT DATE: 20250325
